FAERS Safety Report 16609099 (Version 1)
Quarter: 2019Q3

REPORT INFORMATION
  Report Type: Spontaneous
  Country: US (occurrence: US)
  Receive Date: 20190722
  Receipt Date: 20190722
  Transmission Date: 20191004
  Serious: Yes (Other)
  Sender: FDA-Public Use
  Company Number: US-PFIZER INC-2019306118

PATIENT
  Sex: Male

DRUGS (5)
  1. TOFACITINIB [Suspect]
     Active Substance: TOFACITINIB
     Dosage: 10 MG, 2X/DAY
     Route: 048
  2. TACROLIMUS. [Concomitant]
     Active Substance: TACROLIMUS
     Indication: PROPHYLAXIS AGAINST GRAFT VERSUS HOST DISEASE
     Dosage: UNK
  3. JAKAFI [Suspect]
     Active Substance: RUXOLITINIB
     Indication: T-CELL PROLYMPHOCYTIC LEUKAEMIA
     Dosage: UNK, CYCLIC
     Dates: start: 2015, end: 2016
  4. TOFACITINIB [Suspect]
     Active Substance: TOFACITINIB
     Indication: T-CELL PROLYMPHOCYTIC LEUKAEMIA
     Dosage: 5 MG, 2X/DAY
     Route: 048
     Dates: start: 2015
  5. TOFACITINIB [Suspect]
     Active Substance: TOFACITINIB
     Dosage: UNK (COMBINATION THERAPY: TOCIFITNIB/JAKAFI)
     Dates: end: 2016

REACTIONS (3)
  - Anaemia [Unknown]
  - Thrombocytopenia [Unknown]
  - Oedema [Unknown]
